FAERS Safety Report 11465673 (Version 1)
Quarter: 2015Q3

REPORT INFORMATION
  Report Type: Report from Study
  Country: US (occurrence: US)
  Receive Date: 20150907
  Receipt Date: 20150907
  Transmission Date: 20151125
  Serious: Yes (Hospitalization)
  Sender: FDA-Public Use
  Company Number: US-BIOGENIDEC-2015BI120965

PATIENT
  Age: 60 Year
  Sex: Female

DRUGS (1)
  1. AVONEX [Suspect]
     Active Substance: INTERFERON BETA-1A
     Indication: MULTIPLE SCLEROSIS
     Route: 030
     Dates: start: 19990305, end: 20140901

REACTIONS (5)
  - Cataract [Recovered/Resolved]
  - Eye disorder [Recovered/Resolved]
  - Blindness [Unknown]
  - Multiple sclerosis relapse [Recovered/Resolved]
  - Orbital decompression [Recovered/Resolved with Sequelae]

NARRATIVE: CASE EVENT DATE: 2013
